FAERS Safety Report 8448235-5 (Version None)
Quarter: 2012Q2

REPORT INFORMATION
  Report Type: 
  Country: None (occurrence: None)
  Receive Date: 20120619
  Receipt Date: 20120611
  Transmission Date: 20120825
  Serious: Yes (Hospitalization)
  Sender: FDA-Public Use
  Company Number: PHHO2012US006439

PATIENT
  Sex: Male
  Weight: 69.5 kg

DRUGS (5)
  1. SOTALOL HYDROCHLORIDE [Suspect]
     Dosage: UNK
  2. MEK162 [Suspect]
     Indication: NEOPLASM
     Dosage: 30 MG, BID
     Route: 048
     Dates: start: 20120112, end: 20120419
  3. MEK162 [Suspect]
     Dosage: UNK
     Route: 048
     Dates: start: 20120501
  4. RAF265A [Suspect]
     Dosage: UNK
     Route: 048
     Dates: start: 20120501
  5. RAF265A [Suspect]
     Indication: NEOPLASM
     Dosage: 60 MG, QD
     Route: 048
     Dates: start: 20120112, end: 20120419

REACTIONS (4)
  - ABDOMINAL DISCOMFORT [None]
  - VENTRICULAR TACHYCARDIA [None]
  - TACHYCARDIA [None]
  - SYNCOPE [None]
